FAERS Safety Report 4479601-0 (Version None)
Quarter: 2004Q4

REPORT INFORMATION
  Report Type: 
  Country: None (occurrence: None)
  Receive Date: 20041018
  Receipt Date: 20040930
  Transmission Date: 20050328
  Serious: Yes (Hospitalization)
  Sender: FDA-Public Use
  Company Number: 2004SE05135

PATIENT
  Age: 66 Year
  Sex: Female
  Weight: 60 kg

DRUGS (3)
  1. BLOPRESS [Suspect]
     Indication: HYPERTENSION
     Dosage: 8 MG QD PO
     Route: 048
     Dates: start: 20040715, end: 20040720
  2. NORVASC [Concomitant]
  3. ATORVASTATIN CALCIUM [Concomitant]

REACTIONS (3)
  - CONDITION AGGRAVATED [None]
  - NEPHROTIC SYNDROME [None]
  - OEDEMA PERIPHERAL [None]
